FAERS Safety Report 4699024-9 (Version None)
Quarter: 2005Q2

REPORT INFORMATION
  Report Type: 
  Country: None (occurrence: None)
  Receive Date: 20050623
  Receipt Date: 20050623
  Transmission Date: 20051028
  Serious: Yes (Disabling)
  Sender: FDA-Public Use
  Company Number: None

PATIENT
  Sex: Male

DRUGS (3)
  1. CLOMIPRAMINE  50 MG CAPS [Suspect]
     Indication: OBSESSIVE-COMPULSIVE DISORDER
     Dosage: 50 TID PO
     Route: 048
  2. CLOZARIL [Concomitant]
  3. CONCERTA [Concomitant]

REACTIONS (3)
  - CONDITION AGGRAVATED [None]
  - OBSESSIVE-COMPULSIVE DISORDER [None]
  - THERAPEUTIC RESPONSE UNEXPECTED WITH DRUG SUBSTITUTION [None]
